FAERS Safety Report 21450199 (Version 1)
Quarter: 2022Q4

REPORT INFORMATION
  Report Type: Spontaneous
  Country: ES (occurrence: ES)
  Receive Date: 20221013
  Receipt Date: 20221013
  Transmission Date: 20230112
  Serious: Yes (Other)
  Sender: FDA-Public Use
  Company Number: None

PATIENT
  Age: 62 Year
  Sex: Male

DRUGS (10)
  1. IBUPROFEN [Suspect]
     Active Substance: IBUPROFEN
     Indication: Analgesic therapy
     Dosage: 600 MILLIGRAM, PRN,ORAL SOLUTION/SUSPENSION SACHET
     Route: 048
     Dates: start: 20220815, end: 20220815
  2. CANDESARTAN [Concomitant]
     Active Substance: CANDESARTAN
     Indication: Hypertension
     Dosage: UNK
     Route: 065
  3. VIRIREC [Concomitant]
     Indication: Erectile dysfunction
     Dosage: 1DF, QD,4 SINGLE-USE APPLICATORS (PER POUCH
     Route: 061
     Dates: start: 20220719
  4. Acore [Concomitant]
     Indication: Erectile dysfunction
     Dosage: UNK
     Route: 048
     Dates: start: 20210913
  5. Hierro [Concomitant]
     Indication: Anaemia
     Dosage: 1 DOSAGE FORM, QD
     Route: 048
     Dates: start: 20220629
  6. BUDESONIDE [Concomitant]
     Active Substance: BUDESONIDE
     Indication: Nasal polyps
     Dosage: UNK
     Route: 045
     Dates: start: 20220812
  7. SILDENAFIL [Concomitant]
     Active Substance: SILDENAFIL
     Indication: Pulmonary arterial hypertension
     Dosage: UNK, 4 TABLETS
     Route: 048
     Dates: start: 20210913
  8. INREQ [Concomitant]
     Indication: Nocturia
     Dosage: UNK, 30 TABLETS
     Route: 048
     Dates: start: 20210701
  9. ACETAMINOPHEN [Concomitant]
     Active Substance: ACETAMINOPHEN
     Indication: Analgesic therapy
     Dosage: 1 DOSAGE FORM, Q3D
     Route: 048
     Dates: start: 20220426
  10. SODIUM CHONDROITIN SULFATE [Concomitant]
     Active Substance: SODIUM CHONDROITIN SULFATE
     Indication: Osteoarthritis
     Dosage: 1 DOSAGE FORM, Q2D, 60 CAPSULES
     Route: 048

REACTIONS (1)
  - Hypertensive crisis [Unknown]

NARRATIVE: CASE EVENT DATE: 20220815
